FAERS Safety Report 8052240-0 (Version None)
Quarter: 2012Q1

REPORT INFORMATION
  Report Type: 
  Country: None (occurrence: None)
  Receive Date: 20120118
  Receipt Date: 20120109
  Transmission Date: 20120608
  Serious: Yes (Other)
  Sender: FDA-Public Use
  Company Number: US-JNJFOC-20111109297

PATIENT
  Sex: Male
  Weight: 109.77 kg

DRUGS (3)
  1. REMICADE [Suspect]
     Route: 042
     Dates: start: 20111103
  2. COUMADIN [Suspect]
     Indication: PRODUCT USED FOR UNKNOWN INDICATION
     Route: 065
  3. REMICADE [Suspect]
     Indication: RHEUMATOID ARTHRITIS
     Route: 042
     Dates: end: 20111201

REACTIONS (5)
  - PULMONARY HAEMORRHAGE [None]
  - RASH [None]
  - INTERNATIONAL NORMALISED RATIO INCREASED [None]
  - CELLULITIS [None]
  - INTERNATIONAL NORMALISED RATIO DECREASED [None]
